FAERS Safety Report 16100310 (Version 6)
Quarter: 2019Q3

REPORT INFORMATION
  Report Type: Spontaneous
  Country: US (occurrence: US)
  Receive Date: 20190321
  Receipt Date: 20190916
  Transmission Date: 20191004
  Serious: No
  Sender: FDA-Public Use
  Company Number: PHEH2019US012565

PATIENT
  Sex: Female
  Weight: 90.71 kg

DRUGS (3)
  1. ZOFRAN [Suspect]
     Active Substance: ONDANSETRON HYDROCHLORIDE
     Indication: MORNING SICKNESS
     Dosage: 08 MG, UNK
     Route: 042
     Dates: start: 20150216, end: 20150220
  2. ZOFRAN [Suspect]
     Active Substance: ONDANSETRON HYDROCHLORIDE
     Indication: PRODUCT USED FOR UNKNOWN INDICATION
     Route: 048
  3. ONDANSETRON [Suspect]
     Active Substance: ONDANSETRON
     Indication: HYPEREMESIS GRAVIDARUM
     Dosage: 08 MG, Q8H
     Route: 048
     Dates: start: 20140701, end: 20140901

REACTIONS (8)
  - Injury [Unknown]
  - Emotional distress [Unknown]
  - Anhedonia [Unknown]
  - Product use in unapproved indication [Unknown]
  - Anxiety [Unknown]
  - Maternal exposure during pregnancy [Unknown]
  - Pain [Unknown]
  - Breast pain [Unknown]
